FAERS Safety Report 17907970 (Version 1)
Quarter: 2020Q2

REPORT INFORMATION
  Report Type: Spontaneous
  Country: US (occurrence: US)
  Receive Date: 20200617
  Receipt Date: 20200617
  Transmission Date: 20200714
  Serious: Yes (Other)
  Sender: FDA-Public Use
  Company Number: US-JNJFOC-20200605031

PATIENT
  Age: 51 Year
  Sex: Female

DRUGS (5)
  1. INVEGA SUSTENNA [Suspect]
     Active Substance: PALIPERIDONE PALMITATE
  2. DEPAKOTE [Concomitant]
     Active Substance: DIVALPROEX SODIUM
  3. INVEGA SUSTENNA [Suspect]
     Active Substance: PALIPERIDONE PALMITATE
     Indication: SCHIZOAFFECTIVE DISORDER
     Dosage: 1ST INITIATION DOSE
     Route: 030
     Dates: start: 202001
  4. INVEGA SUSTENNA [Suspect]
     Active Substance: PALIPERIDONE PALMITATE
  5. INVEGA [Concomitant]
     Active Substance: PALIPERIDONE
     Route: 048

REACTIONS (2)
  - Schizoaffective disorder [Unknown]
  - Product dose omission [Unknown]
